FAERS Safety Report 5073789-9 (Version None)
Quarter: 2006Q3

REPORT INFORMATION
  Report Type: 
  Country: None (occurrence: None)
  Receive Date: 20060808
  Receipt Date: 20050506
  Transmission Date: 20061208
  Serious: Yes (Hospitalization)
  Sender: FDA-Public Use
  Company Number: US-AMGEN-US132816

PATIENT
  Age: 81 Year
  Sex: Female

DRUGS (3)
  1. EPOGEN [Suspect]
     Indication: RENAL FAILURE CHRONIC
     Dates: start: 20041201
  2. PROCRIT [Suspect]
     Indication: RENAL FAILURE CHRONIC
     Dates: start: 20020701, end: 20041201
  3. INSULIN [Concomitant]

REACTIONS (2)
  - ERYTHEMA [None]
  - PRURITUS GENERALISED [None]
